FAERS Safety Report 5527453-X (Version None)
Quarter: 2007Q4

REPORT INFORMATION
  Report Type: 
  Country: None (occurrence: None)
  Receive Date: 20071123
  Receipt Date: 20071109
  Transmission Date: 20080405
  Serious: Yes (Hospitalization, Other)
  Sender: FDA-Public Use
  Company Number: MC200700698

PATIENT
  Age: 58 Year
  Sex: Male

DRUGS (2)
  1. ANGIOMAX [Suspect]
     Indication: CORONARY ARTERY BYPASS
     Dosage: INTRAVENOUS
     Route: 042
     Dates: start: 20070101, end: 20070101
  2. ANTIHYPERTENSIVES [Suspect]

REACTIONS (4)
  - AMNESIA [None]
  - FALL [None]
  - HYPOTENSION [None]
  - LOSS OF CONSCIOUSNESS [None]
